FAERS Safety Report 13871175 (Version 6)
Quarter: 2018Q2

REPORT INFORMATION
  Report Type: Report from Study
  Country: CN (occurrence: CN)
  Receive Date: 20170816
  Receipt Date: 20180523
  Transmission Date: 20180711
  Serious: Yes (Death, Hospitalization)
  Sender: FDA-Public Use
  Company Number: CN-PFIZER INC-2017349194

PATIENT
  Age: 45 Year
  Sex: Female
  Weight: 58 kg

DRUGS (3)
  1. SUNITINIB MALATE. [Suspect]
     Active Substance: SUNITINIB MALATE
     Dosage: 37.5 MG, 1X/DAY
     Dates: start: 20160327, end: 20160608
  2. SUNITINIB MALATE. [Suspect]
     Active Substance: SUNITINIB MALATE
     Dosage: 37.5 MG, 1X/DAY
     Dates: start: 20160611
  3. SUNITINIB MALATE. [Suspect]
     Active Substance: SUNITINIB MALATE
     Indication: INSULINOMA
     Dosage: 25 MG, 1X/DAY
     Dates: start: 20160311, end: 20160322

REACTIONS (1)
  - Oedema peripheral [Not Recovered/Not Resolved]

NARRATIVE: CASE EVENT DATE: 20170225
